FAERS Safety Report 6787854-9 (Version None)
Quarter: 2010Q2

REPORT INFORMATION
  Report Type: 
  Country: None (occurrence: None)
  Receive Date: 20100623
  Receipt Date: 20070925
  Transmission Date: 20101027
  Serious: Yes (Other)
  Sender: FDA-Public Use
  Company Number: US-PFIZER INC-2007080821

PATIENT
  Sex: Female

DRUGS (3)
  1. SOLU-MEDROL [Suspect]
     Dosage: 1G,FREQUENCY: 1 IN 1 DAYS
     Route: 042
     Dates: start: 20070416, end: 20070420
  2. SOLU-MEDROL [Suspect]
     Dosage: 1G,FREQUENCY: 1 IN 1 MONTHS
     Route: 042
     Dates: start: 20070501, end: 20070911
  3. REBIF [Suspect]
     Indication: MULTIPLE SCLEROSIS
     Dosage: FREQUENCY: 3 IN 1 WEEKS
     Route: 058
     Dates: start: 20070413

REACTIONS (1)
  - ANAPHYLACTIC REACTION [None]
